FAERS Safety Report 6457371-4 (Version None)
Quarter: 2009Q4

REPORT INFORMATION
  Report Type: 
  Country: None (occurrence: None)
  Receive Date: 20091123
  Receipt Date: 20091113
  Transmission Date: 20100525
  Serious: Yes (Death)
  Sender: FDA-Public Use
  Company Number: AE 2009-148

PATIENT
  Age: 48 Year
  Sex: Female

DRUGS (8)
  1. FAZACLO ODT [Suspect]
     Indication: SCHIZOPHRENIA
     Dosage: 200 MG HHS PO
     Route: 048
     Dates: start: 20081208, end: 20091003
  2. BUPROPION HCL [Concomitant]
  3. SEROQUEL [Concomitant]
  4. TYLENOL (CAPLET) [Concomitant]
  5. ALBUTEROL [Concomitant]
  6. LITHIUM [Concomitant]
  7. BENZTROPINE MESYLATE [Concomitant]
  8. ASPIRIN [Concomitant]

REACTIONS (2)
  - ANEURYSM [None]
  - MYOCARDIAL INFARCTION [None]
